FAERS Safety Report 16654102 (Version 10)
Quarter: 2023Q1

REPORT INFORMATION
  Report Type: Spontaneous
  Country: US (occurrence: US)
  Receive Date: 20190731
  Receipt Date: 20230109
  Transmission Date: 20230418
  Serious: Yes (Hospitalization, Other)
  Sender: FDA-Public Use
  Company Number: US-SA-2019SA202096

PATIENT
  Age: 39 Year
  Sex: Female

DRUGS (2)
  1. DUPIXENT [Suspect]
     Active Substance: DUPILUMAB
     Indication: Dermatitis atopic
     Dosage: 300 MG, QOW
     Route: 058
     Dates: start: 20190312
  2. DUPIXENT [Suspect]
     Active Substance: DUPILUMAB
     Indication: Polyarthritis
     Dosage: 300 MG
     Route: 065

REACTIONS (9)
  - Eye disorder [Unknown]
  - Skin disorder [Unknown]
  - Dermatitis atopic [Not Recovered/Not Resolved]
  - Mental disorder [Unknown]
  - Ulcer [Unknown]
  - Arthralgia [Unknown]
  - Joint swelling [Unknown]
  - Drug ineffective [Unknown]
  - Product use in unapproved indication [Unknown]

NARRATIVE: CASE EVENT DATE: 20190312
